FAERS Safety Report 19390644 (Version 1)
Quarter: 2021Q2

REPORT INFORMATION
  Report Type: Spontaneous
  Country: US (occurrence: US)
  Receive Date: 20210608
  Receipt Date: 20210608
  Transmission Date: 20210717
  Serious: No
  Sender: FDA-Public Use
  Company Number: US-PAIPHARMA-2020-US-012457

PATIENT
  Age: 23 Year
  Sex: Male

DRUGS (2)
  1. GABAPENTIN ORAL SOLUTION [Suspect]
     Active Substance: GABAPENTIN
     Indication: SEVERE MYOCLONIC EPILEPSY OF INFANCY
     Dosage: DOSE UNKNOWN; VIA G?TUBE
  2. METOCLOPRAMIDE ORAL SOLUTION USP, AF SF [Suspect]
     Active Substance: METOCLOPRAMIDE
     Indication: IMPAIRED GASTRIC EMPTYING
     Dosage: 5 ML THREE TIMES A DAY

REACTIONS (1)
  - Muscle twitching [Unknown]
